FAERS Safety Report 9433170 (Version 3)
Quarter: 2013Q3

REPORT INFORMATION
  Report Type: Spontaneous
  Country: US (occurrence: US)
  Receive Date: 20130731
  Receipt Date: 20130814
  Transmission Date: 20140515
  Serious: Yes (Hospitalization)
  Sender: FDA-Public Use
  Company Number: US-GLAXOSMITHKLINE-A1035483A

PATIENT
  Age: 54 Year
  Sex: Female

DRUGS (1)
  1. MEPRON [Suspect]
     Indication: PRODUCT USED FOR UNKNOWN INDICATION
     Dosage: 750MG UNKNOWN
     Route: 048

REACTIONS (4)
  - Lung transplant [Unknown]
  - Hospitalisation [Unknown]
  - Product taste abnormal [Unknown]
  - Expired drug administered [Unknown]
